FAERS Safety Report 6662107-8 (Version None)
Quarter: 2010Q1

REPORT INFORMATION
  Report Type: 
  Country: None (occurrence: None)
  Receive Date: 20100331
  Receipt Date: 20100325
  Transmission Date: 20100710
  Serious: Yes (Death)
  Sender: FDA-Public Use
  Company Number: BE-GENZYME-FABR-1001292

PATIENT

DRUGS (2)
  1. FABRAZYME [Suspect]
     Indication: FABRY'S DISEASE
     Route: 042
  2. FABRAZYME [Suspect]
     Route: 042

REACTIONS (2)
  - DEATH [None]
  - DEPRESSION [None]
